FAERS Safety Report 17691377 (Version 1)
Quarter: 2020Q2

REPORT INFORMATION
  Report Type: Spontaneous
  Country: DE (occurrence: DE)
  Receive Date: 20200422
  Receipt Date: 20200422
  Transmission Date: 20200714
  Serious: Yes (Hospitalization, Other)
  Sender: FDA-Public Use
  Company Number: DE-ABBVIE-20K-062-3373429-00

PATIENT
  Age: 48 Year
  Sex: Female
  Weight: 60 kg

DRUGS (1)
  1. RINVOQ [Suspect]
     Active Substance: UPADACITINIB
     Indication: RHEUMATOID ARTHRITIS
     Route: 048
     Dates: start: 202002, end: 2020

REACTIONS (4)
  - Abdominal pain [Recovering/Resolving]
  - Ovarian cyst ruptured [Recovering/Resolving]
  - Abdominal operation [Unknown]
  - Appendicectomy [Recovering/Resolving]

NARRATIVE: CASE EVENT DATE: 2020
